FAERS Safety Report 9102355 (Version 1)
Quarter: 2013Q1

REPORT INFORMATION
  Report Type: Spontaneous
  Country: FR (occurrence: FR)
  Receive Date: 20130219
  Receipt Date: 20130219
  Transmission Date: 20140127
  Serious: Yes (Hospitalization)
  Sender: FDA-Public Use
  Company Number: FR-PFIZER INC-2013059612

PATIENT
  Age: 87 Year
  Sex: Female

DRUGS (20)
  1. ALPRAZOLAM [Suspect]
     Dosage: 0.25 MG, DAILY
     Route: 048
     Dates: start: 20130107
  2. ALDACTONE [Suspect]
     Dosage: 50 MG, DAILY
     Route: 048
     Dates: start: 20121226
  3. AMOXICILLIN CLAVULANIC ACID [Suspect]
     Indication: INFECTION
     Dosage: 1 G, 3 TIMES DAILY
     Route: 042
     Dates: start: 20121207, end: 20121217
  4. FUCIDINE [Suspect]
     Indication: INFECTION
     Dosage: 1 G, DAILY
     Route: 048
     Dates: start: 20121205, end: 20121212
  5. RANITIDINE HYDROCHLORIDE [Suspect]
     Dosage: 150 MG, DAILY
     Route: 048
     Dates: start: 20121217
  6. LERCAN [Concomitant]
     Dosage: 10 MG, DAILY
  7. NEBILOX [Concomitant]
     Dosage: 5 MG, DAILY
  8. KARDEGIC [Concomitant]
     Dosage: 75 MG, DAILY
  9. MIFLONIL [Concomitant]
     Dosage: 200 UG, 2X/DAY
  10. TEMESTA [Concomitant]
     Dosage: 1 MG, DAILY
  11. ALDACTAZINE [Concomitant]
     Dosage: 1 DF, DAILY
     Dates: end: 20121226
  12. CRESTOR [Concomitant]
     Dosage: 5 MG, DAILY
     Dates: end: 20130111
  13. DOLIPRANE [Concomitant]
     Dosage: 3 G DAILY AS NEEDED
     Dates: end: 20130117
  14. INEXIUM [Concomitant]
     Dosage: 20 MG, DAILY
     Dates: end: 20121217
  15. SKENAN [Concomitant]
     Dosage: 10 MG, 2 DF DAILY
     Dates: start: 20121210
  16. ACTISKENAN [Concomitant]
     Dosage: 5 MG UPTO 4 DF DAILY
  17. SMECTA [Concomitant]
     Dosage: UNK, AS NEEDED
  18. KAYEXALATE [Concomitant]
     Indication: HYPERKALAEMIA
     Dosage: UNK
  19. LOVENOX [Concomitant]
     Dosage: 4000 IU, DAILY
     Dates: start: 20121207, end: 20121217
  20. LOVENOX [Concomitant]
     Dosage: 4000 IU, DAILY
     Dates: start: 20121224

REACTIONS (2)
  - Cholestasis [Not Recovered/Not Resolved]
  - Hepatocellular injury [Not Recovered/Not Resolved]
